FAERS Safety Report 25686204 (Version 1)
Quarter: 2025Q3

REPORT INFORMATION
  Report Type: Spontaneous
  Country: US (occurrence: None)
  Receive Date: 20250814
  Receipt Date: 20250814
  Transmission Date: 20251020
  Serious: No
  Sender: FDA-CTU
  Company Number: None

PATIENT
  Age: 77 Year
  Sex: Male

DRUGS (2)
  1. JAYPIRCA [Suspect]
     Active Substance: PIRTOBRUTINIB
     Indication: Waldenstrom^s macroglobulinaemia
     Dosage: FREQUENCY : DAILY;?
     Route: 048
     Dates: start: 20250804
  2. ZEPBOUND [Suspect]
     Active Substance: TIRZEPATIDE

REACTIONS (3)
  - Contusion [None]
  - Peripheral swelling [None]
  - Peripheral swelling [None]

NARRATIVE: CASE EVENT DATE: 20250814
